FAERS Safety Report 23609949 (Version 1)
Quarter: 2024Q1

REPORT INFORMATION
  Report Type: Spontaneous
  Country: GR (occurrence: GR)
  Receive Date: 20240308
  Receipt Date: 20240308
  Transmission Date: 20240410
  Serious: Yes (Other)
  Sender: FDA-Public Use
  Company Number: GR-PFIZER INC-PV202400002364

PATIENT
  Age: 14 Year
  Sex: Male
  Weight: 52 kg

DRUGS (2)
  1. GENOTROPIN [Suspect]
     Active Substance: SOMATROPIN
     Indication: Dwarfism
     Dosage: 3 DAYS 2MG, 2 DAYS 1.6MG, 2 DAYS 1.4MG AND 1 DAY-OFF / 6 DAYS
     Route: 058
     Dates: start: 20240103
  2. GENOTROPIN [Suspect]
     Active Substance: SOMATROPIN
     Dosage: 3 DAYS 2MG, 2 DAYS 1.6MG, 2 DAYS 1.4MG AND 1 DAY-OFF / 6 DAYS
     Route: 058
     Dates: start: 20240103

REACTIONS (2)
  - Accidental overdose [Unknown]
  - Device use error [Unknown]

NARRATIVE: CASE EVENT DATE: 20240103
